FAERS Safety Report 21083897 (Version 1)
Quarter: 2022Q3

REPORT INFORMATION
  Report Type: Spontaneous
  Country: US (occurrence: US)
  Receive Date: 20220714
  Receipt Date: 20220714
  Transmission Date: 20221027
  Serious: No
  Sender: FDA-Public Use
  Company Number: US-JAZZ-202203USGW01319

PATIENT
  Age: 14 Year
  Sex: Female
  Weight: 43.8 kg

DRUGS (3)
  1. EPIDIOLEX [Suspect]
     Active Substance: CANNABIDIOL
     Indication: Epilepsy
     Dosage: 18.26 MG/KG/DAY, 400 MILLIGRAM, BID
     Route: 048
  2. EPIDIOLEX [Suspect]
     Active Substance: CANNABIDIOL
     Dosage: 9.13 MG/KG/DAY, 200 MILLIGRAM, BID
     Route: 048
  3. EPIDIOLEX [Suspect]
     Active Substance: CANNABIDIOL
     Dosage: 4 MILLILITER
     Route: 048
     Dates: start: 20201202

REACTIONS (3)
  - Dysphagia [Unknown]
  - Intentional underdose [Unknown]
  - Product prescribing issue [Unknown]

NARRATIVE: CASE EVENT DATE: 20220301
